FAERS Safety Report 5244266-7 (Version None)
Quarter: 2007Q1

REPORT INFORMATION
  Report Type: 
  Country: None (occurrence: None)
  Receive Date: 20070222
  Receipt Date: 20070215
  Transmission Date: 20070707
  Serious: Yes (Hospitalization)
  Sender: FDA-Public Use
  Company Number: 2007AP01102

PATIENT
  Age: 53 Year
  Sex: Female

DRUGS (2)
  1. NOLVADEX [Suspect]
     Indication: BREAST CANCER
     Route: 048
  2. RADIATION THERAPY [Concomitant]
     Dosage: 48 GY AND 18GY

REACTIONS (1)
  - CRYPTOGENIC ORGANISING PNEUMONIA [None]
